FAERS Safety Report 25627401 (Version 2)
Quarter: 2025Q3

REPORT INFORMATION
  Report Type: Spontaneous
  Country: CA (occurrence: CA)
  Receive Date: 20250731
  Receipt Date: 20250811
  Transmission Date: 20251020
  Serious: Yes (Hospitalization, Other)
  Sender: PFIZER
  Company Number: CA-PFIZER INC-202500152995

PATIENT
  Age: 19 Year
  Sex: Female

DRUGS (3)
  1. VINCRISTINE SULFATE [Interacting]
     Active Substance: VINCRISTINE SULFATE
     Indication: Chemotherapy
     Route: 041
  2. POSACONAZOLE [Concomitant]
     Active Substance: POSACONAZOLE
  3. VORICONAZOLE [Concomitant]
     Active Substance: VORICONAZOLE

REACTIONS (6)
  - Neuropathy peripheral [Unknown]
  - Partial seizures [Unknown]
  - Drug interaction [Unknown]
  - Bone pain [Unknown]
  - Myalgia [Unknown]
  - Constipation [Unknown]
